FAERS Safety Report 5467714-6 (Version None)
Quarter: 2007Q3

REPORT INFORMATION
  Report Type: 
  Country: None (occurrence: None)
  Receive Date: 20070921
  Receipt Date: 20070910
  Transmission Date: 20080115
  Serious: Yes (Other)
  Sender: FDA-Public Use
  Company Number: CHNY2007JP02853

PATIENT
  Age: 50 Year

DRUGS (3)
  1. NICOTINE [Suspect]
     Indication: SMOKING CESSATION THERAPY
     Dosage: 21 MG, TRANSDERMAL; 14 MG, QD, TRANSDERMAL; 7 MG, QD, TRANSDERMAL
     Route: 062
     Dates: start: 20050923, end: 20051005
  2. NICOTINE [Suspect]
     Indication: SMOKING CESSATION THERAPY
     Dosage: 21 MG, TRANSDERMAL; 14 MG, QD, TRANSDERMAL; 7 MG, QD, TRANSDERMAL
     Route: 062
     Dates: start: 20051006, end: 20051019
  3. NICOTINE [Suspect]
     Indication: SMOKING CESSATION THERAPY
     Dosage: 21 MG, TRANSDERMAL; 14 MG, QD, TRANSDERMAL; 7 MG, QD, TRANSDERMAL
     Route: 062
     Dates: start: 20051020

REACTIONS (11)
  - ANXIETY [None]
  - DEPRESSION [None]
  - DRUG TOXICITY [None]
  - FEAR [None]
  - HEADACHE [None]
  - OVERDOSE [None]
  - PALPITATIONS [None]
  - PANIC ATTACK [None]
  - RESTLESSNESS [None]
  - STOMACH DISCOMFORT [None]
  - STRESS AT WORK [None]
